FAERS Safety Report 16751647 (Version 2)
Quarter: 2019Q4

REPORT INFORMATION
  Report Type: Spontaneous
  Country: JP (occurrence: JP)
  Receive Date: 20190828
  Receipt Date: 20191231
  Transmission Date: 20200122
  Serious: Yes (Hospitalization)
  Sender: FDA-Public Use
  Company Number: JP-ASTRAZENECA-2019SF12975

PATIENT
  Age: 72 Year
  Sex: Female

DRUGS (1)
  1. LYNPARZA [Suspect]
     Active Substance: OLAPARIB
     Indication: OVARIAN CANCER
     Route: 048
     Dates: start: 20190502, end: 20190523

REACTIONS (7)
  - Pyrexia [Unknown]
  - Hepatic enzyme increased [Unknown]
  - Rash pruritic [Recovering/Resolving]
  - Diarrhoea [Unknown]
  - Rash [Recovering/Resolving]
  - Dermatomyositis [Not Recovered/Not Resolved]
  - Dry mouth [Unknown]

NARRATIVE: CASE EVENT DATE: 2019
